FAERS Safety Report 8907253 (Version 2)
Quarter: 2013Q1

REPORT INFORMATION
  Report Type: Spontaneous
  Country: US (occurrence: US)
  Receive Date: 20121114
  Receipt Date: 20130125
  Transmission Date: 20140127
  Serious: Yes (Death, Other)
  Sender: FDA-Public Use
  Company Number: PHEH2012US022433

PATIENT
  Age: 60 Year
  Sex: Female

DRUGS (2)
  1. GLEEVEC [Suspect]
     Indication: SOFT TISSUE CANCER
     Dosage: 400 MG, UNK
     Route: 048
     Dates: start: 20100820
  2. SUTENT [Suspect]
     Dosage: UNK UKN, UNK

REACTIONS (3)
  - Death [Fatal]
  - Soft tissue cancer [Not Recovered/Not Resolved]
  - Malignant neoplasm progression [Not Recovered/Not Resolved]
